FAERS Safety Report 6608785-0 (Version None)
Quarter: 2010Q1

REPORT INFORMATION
  Report Type: 
  Country: None (occurrence: None)
  Receive Date: 20100301
  Receipt Date: 20100216
  Transmission Date: 20100710
  Serious: Yes (Hospitalization)
  Sender: FDA-Public Use
  Company Number: US-BAYER-201011847BCC

PATIENT
  Age: 12 Year
  Sex: Male
  Weight: 70 kg

DRUGS (1)
  1. ASPIRIN [Suspect]
     Indication: PYREXIA
     Route: 048
     Dates: start: 19900101, end: 19900101

REACTIONS (6)
  - CHEST DISCOMFORT [None]
  - CYANOSIS [None]
  - DYSPNOEA [None]
  - HYPERSENSITIVITY [None]
  - OESOPHAGEAL DISCOMFORT [None]
  - PYREXIA [None]
